FAERS Safety Report 4931368-5 (Version None)
Quarter: 2006Q1

REPORT INFORMATION
  Report Type: 
  Country: None (occurrence: None)
  Receive Date: 20060303
  Receipt Date: 20051107
  Transmission Date: 20060701
  Serious: Yes (Death, Hospitalization)
  Sender: FDA-Public Use
  Company Number: PHBS2005NZ16326

PATIENT
  Age: 51 Year
  Sex: Male

DRUGS (13)
  1. GLEEVEC [Suspect]
     Indication: CHRONIC MYELOID LEUKAEMIA
     Dosage: 600 MG/DAY
     Route: 048
     Dates: end: 20051025
  2. GLEEVEC [Suspect]
     Dosage: UNK, UNK
     Dates: start: 20051102
  3. OMEPRAZOLE [Concomitant]
     Dosage: 40 MG, QD
  4. TRANEXAMIC ACID [Concomitant]
     Dosage: 1 G, TID
  5. METRONIDAZOLE [Concomitant]
     Dosage: 500 MG, BID
  6. ALLOPURINOL [Concomitant]
     Dosage: 300 MG/DAY
  7. HYDROCORTISONE [Concomitant]
     Dosage: 100 MG, QID
  8. CEFEPIME [Concomitant]
     Dosage: 2 G, BID
     Dates: start: 20051101
  9. CIPROFLOXACIN [Concomitant]
  10. PREDNISONE [Concomitant]
  11. M-ESTON [Concomitant]
  12. SLOW-K [Concomitant]
  13. TRAMADOL HCL [Concomitant]

REACTIONS (7)
  - BLAST CELLS PRESENT [None]
  - CHILLS [None]
  - DEATH [None]
  - EPISTAXIS [None]
  - PNEUMONIA [None]
  - PYREXIA [None]
  - SEPTIC SHOCK [None]
